FAERS Safety Report 5269580-0 (Version None)
Quarter: 2007Q1

REPORT INFORMATION
  Report Type: 
  Country: None (occurrence: None)
  Receive Date: 20070320
  Receipt Date: 20070309
  Transmission Date: 20070707
  Serious: Yes (Life-Threatening, Hospitalization)
  Sender: FDA-Public Use
  Company Number: FR-JNJFOC-20070302647

PATIENT
  Sex: Female

DRUGS (2)
  1. HALDOL [Suspect]
     Indication: SUICIDE ATTEMPT
     Dosage: 9 VIALS
     Route: 048
  2. LEPTICUR [Suspect]
     Indication: SUICIDE ATTEMPT
     Route: 065

REACTIONS (3)
  - COMA [None]
  - DRUG ADMINISTRATION ERROR [None]
  - SUICIDE ATTEMPT [None]
